FAERS Safety Report 12648672 (Version 3)
Quarter: 2016Q3

REPORT INFORMATION
  Report Type: Spontaneous
  Country: NL (occurrence: NL)
  Receive Date: 20160812
  Receipt Date: 20160912
  Transmission Date: 20161109
  Serious: Yes (Life-Threatening, Hospitalization, Other)
  Sender: FDA-Public Use
  Company Number: NL-ABBVIE-16P-114-1692871-00

PATIENT
  Age: 43 Year
  Sex: Male

DRUGS (3)
  1. OXAZEPAM. [Suspect]
     Active Substance: OXAZEPAM
     Indication: OVERDOSE
     Route: 048
  2. VALPROIC ACID. [Suspect]
     Active Substance: VALPROIC ACID
     Indication: OVERDOSE
     Dosage: EXTENDED RELEASE
     Route: 048
  3. QUETIAPINE FUMARATE. [Suspect]
     Active Substance: QUETIAPINE FUMARATE
     Indication: OVERDOSE
     Route: 048

REACTIONS (10)
  - Haemodynamic instability [Recovered/Resolved]
  - Toxicity to various agents [Recovered/Resolved]
  - Blood creatine phosphokinase increased [Recovered/Resolved]
  - Hepatic function abnormal [Recovered/Resolved]
  - Coma [Recovered/Resolved]
  - Hyperammonaemia [Recovered/Resolved]
  - Drug level increased [Recovered/Resolved]
  - Intentional overdose [Recovered/Resolved]
  - Electrocardiogram QT prolonged [Recovered/Resolved]
  - Metabolic encephalopathy [Recovered/Resolved]
